FAERS Safety Report 16914748 (Version 1)
Quarter: 2019Q4

REPORT INFORMATION
  Report Type: Spontaneous
  Country: CA (occurrence: CA)
  Receive Date: 20191014
  Receipt Date: 20191014
  Transmission Date: 20200122
  Serious: Yes (Other)
  Sender: FDA-Public Use
  Company Number: CA-PFIZER INC-2019439124

PATIENT
  Age: 84 Year
  Sex: Male

DRUGS (7)
  1. AMANTADINE. [Concomitant]
     Active Substance: AMANTADINE HYDROCHLORIDE
     Dosage: UNK
  2. BISOPROLOL [Concomitant]
     Active Substance: BISOPROLOL
     Dosage: UNK
  3. LIPITOR [Suspect]
     Active Substance: ATORVASTATIN CALCIUM
     Dosage: UNK, 1X/DAY
  4. XARELTO [Suspect]
     Active Substance: RIVAROXABAN
     Dosage: UNK, TABLET
  5. XARELTO [Suspect]
     Active Substance: RIVAROXABAN
     Dosage: 15 MG, UNK, UNKNOWN FORMULATION
  6. LASIX [Concomitant]
     Active Substance: FUROSEMIDE
     Dosage: UNK
  7. COVERSYL [PERINDOPRIL ARGININE] [Concomitant]
     Active Substance: PERINDOPRIL ARGININE
     Dosage: UNK

REACTIONS (5)
  - Epistaxis [Unknown]
  - Haemoglobin decreased [Unknown]
  - Gingival bleeding [Unknown]
  - Red blood cell count decreased [Unknown]
  - Post procedural haemorrhage [Unknown]
